FAERS Safety Report 7508806-7 (Version None)
Quarter: 2011Q2

REPORT INFORMATION
  Report Type: 
  Country: None (occurrence: None)
  Receive Date: 20110527
  Receipt Date: 20110328
  Transmission Date: 20111010
  Serious: No
  Sender: FDA-Public Use
  Company Number: A0920305A

PATIENT
  Age: 77 Year
  Sex: Female

DRUGS (4)
  1. VENTOLIN [Suspect]
     Indication: ASTHMA
     Dosage: 2SPR PER DAY
     Route: 055
     Dates: start: 20110324, end: 20110325
  2. CARDIZEM [Concomitant]
  3. ZOCOR [Concomitant]
  4. PRADAXA [Concomitant]

REACTIONS (1)
  - HYPERTENSION [None]
